FAERS Safety Report 6473079-3 (Version None)
Quarter: 2009Q4

REPORT INFORMATION
  Report Type: 
  Country: None (occurrence: None)
  Receive Date: 20091204
  Receipt Date: 20091127
  Transmission Date: 20100525
  Serious: Yes (Death)
  Sender: FDA-Public Use
  Company Number: BR-BAYER-200924790LA

PATIENT
  Sex: Male

DRUGS (1)
  1. BETAFERON [Suspect]
     Indication: DRUG USE FOR UNKNOWN INDICATION
     Route: 058

REACTIONS (1)
  - DEATH [None]
